FAERS Safety Report 14590685 (Version 2)
Quarter: 2018Q2

REPORT INFORMATION
  Report Type: Report from Study
  Country: DE (occurrence: DE)
  Receive Date: 20180302
  Receipt Date: 20180426
  Transmission Date: 20180711
  Serious: Yes (Hospitalization)
  Sender: FDA-Public Use
  Company Number: DE-AMGEN-DEUNI2018028263

PATIENT
  Age: 63 Year
  Sex: Male
  Weight: 71 kg

DRUGS (6)
  1. DEXAMETHASONE. [Concomitant]
     Active Substance: DEXAMETHASONE
     Indication: PLASMA CELL MYELOMA
     Dosage: 40 MG, UNK
     Dates: start: 20180116, end: 20180220
  2. CARFILZOMIB [Suspect]
     Active Substance: CARFILZOMIB
     Dosage: 49.41 MG, UNK
     Route: 065
     Dates: start: 2018, end: 20180221
  3. ZOMETA [Concomitant]
     Active Substance: ZOLEDRONIC ACID
     Dosage: 4 MG, QMO
     Route: 042
     Dates: start: 20140522
  4. FALITHROM [Concomitant]
     Active Substance: PHENPROCOUMON
     Dosage: 1 UNK
     Route: 042
     Dates: start: 2017
  5. CARFILZOMIB [Suspect]
     Active Substance: CARFILZOMIB
     Indication: PLASMA CELL MYELOMA
     Dosage: 49.4 MG, UNK (LINE 2)
     Route: 065
     Dates: start: 20180116, end: 2018
  6. LENALIDOMIDE [Suspect]
     Active Substance: LENALIDOMIDE
     Indication: PLASMA CELL MYELOMA
     Dosage: 25 MG, UNK
     Route: 065
     Dates: start: 20180116, end: 20180226

REACTIONS (2)
  - Gastrointestinal infection [Recovered/Resolved]
  - Syncope [Recovered/Resolved]

NARRATIVE: CASE EVENT DATE: 20180226
